FAERS Safety Report 7899776-0 (Version None)
Quarter: 2011Q4

REPORT INFORMATION
  Report Type: 
  Country: None (occurrence: None)
  Receive Date: 20111107
  Receipt Date: 20110919
  Transmission Date: 20120403
  Serious: No
  Sender: FDA-Public Use
  Company Number: US-AMGEN-USASP2011048129

PATIENT
  Age: 51 Year
  Sex: Female

DRUGS (2)
  1. ENBREL [Suspect]
     Indication: ANKYLOSING SPONDYLITIS
     Dosage: 25 MG, 2 TIMES/WK
     Dates: start: 20020101
  2. TREXALL [Concomitant]
     Dosage: 1 MG, QWK
     Dates: start: 19920101

REACTIONS (3)
  - MACULE [None]
  - INJECTION SITE PAIN [None]
  - PAIN [None]
